FAERS Safety Report 14394681 (Version 1)
Quarter: 2018Q1

REPORT INFORMATION
  Report Type: Spontaneous
  Country: US (occurrence: US)
  Receive Date: 20180116
  Receipt Date: 20180116
  Transmission Date: 20180509
  Serious: Yes (Death, Hospitalization)
  Sender: FDA-Public Use
  Company Number: US-PFIZER INC-3158940

PATIENT
  Age: 51 Year
  Sex: Male

DRUGS (1)
  1. PROPOFOL. [Suspect]
     Active Substance: PROPOFOL
     Dosage: UNK
     Route: 051
     Dates: start: 2014, end: 2014

REACTIONS (7)
  - Completed suicide [Fatal]
  - Cardiac arrest [Fatal]
  - Toxicity to various agents [Fatal]
  - Pulseless electrical activity [Fatal]
  - Respiratory depression [Fatal]
  - Bradycardia [Fatal]
  - Injection site haemorrhage [Fatal]

NARRATIVE: CASE EVENT DATE: 2014
